FAERS Safety Report 13996528 (Version 2)
Quarter: 2017Q4

REPORT INFORMATION
  Report Type: Report from Study
  Country: US (occurrence: BR)
  Receive Date: 20170921
  Receipt Date: 20171018
  Transmission Date: 20180321
  Serious: Yes (Hospitalization, Other)
  Sender: FDA-Public Use
  Company Number: US-SUNOVION-2017SUN004090

PATIENT
  Sex: Female

DRUGS (7)
  1. INDACATEROL [Suspect]
     Active Substance: INDACATEROL
     Indication: CHRONIC OBSTRUCTIVE PULMONARY DISEASE
  2. OXYGEN. [Concomitant]
     Active Substance: OXYGEN
  3. INDACATEROL [Suspect]
     Active Substance: INDACATEROL
     Indication: RESPIRATORY DISORDER
     Dosage: 150 ?G, QD
     Route: 055
  4. SPIRIVA [Concomitant]
     Active Substance: TIOTROPIUM BROMIDE MONOHYDRATE
  5. CLENIL [Concomitant]
     Active Substance: BECLOMETHASONE DIPROPIONATE
  6. DUVENT [Concomitant]
  7. XARELTO [Concomitant]
     Active Substance: RIVAROXABAN

REACTIONS (13)
  - Respiratory disorder [Unknown]
  - Dyspnoea [Unknown]
  - Limb discomfort [Unknown]
  - Weight increased [Unknown]
  - Thrombosis [Unknown]
  - Peripheral swelling [Unknown]
  - Malaise [Unknown]
  - Pain in extremity [Unknown]
  - Fatigue [Unknown]
  - Pulmonary haemorrhage [Unknown]
  - Erythema [Unknown]
  - Pneumonia [Unknown]
  - Pulmonary mass [Unknown]
